FAERS Safety Report 13601678 (Version 1)
Quarter: 2017Q2

REPORT INFORMATION
  Report Type: Spontaneous
  Country: US (occurrence: US)
  Receive Date: 20170601
  Receipt Date: 20170601
  Transmission Date: 20170830
  Serious: No
  Sender: FDA-Public Use
  Company Number: US-BAUSCH-BL-2016-030404

PATIENT
  Sex: Male

DRUGS (2)
  1. LYRICA [Concomitant]
     Active Substance: PREGABALIN
     Indication: DIABETIC NEUROPATHY
     Route: 048
  2. ELIDEL [Suspect]
     Active Substance: PIMECROLIMUS
     Indication: PSORIASIS
     Route: 061
     Dates: start: 20161126, end: 20161129

REACTIONS (6)
  - Application site haemorrhage [Unknown]
  - Application site vesicles [Not Recovered/Not Resolved]
  - Application site pain [Recovering/Resolving]
  - Off label use [Unknown]
  - Blood blister [Unknown]
  - Application site erythema [Not Recovered/Not Resolved]

NARRATIVE: CASE EVENT DATE: 2016
